FAERS Safety Report 17294953 (Version 1)
Quarter: 2020Q1

REPORT INFORMATION
  Report Type: Spontaneous
  Country: US (occurrence: US)
  Receive Date: 20200121
  Receipt Date: 20200121
  Transmission Date: 20200409
  Serious: No
  Sender: FDA-Public Use
  Company Number: US-PFIZER INC-2020024750

PATIENT
  Age: 27 Year
  Sex: Female

DRUGS (3)
  1. XELJANZ [Suspect]
     Active Substance: TOFACITINIB CITRATE
     Dosage: 10 MG, 2X/DAY [THEN 2- 5 MG TABLETS TWICE DAILY]
     Route: 048
     Dates: end: 201911
  2. XELJANZ [Suspect]
     Active Substance: TOFACITINIB CITRATE
     Indication: RHEUMATOID ARTHRITIS
     Dosage: 5 MG, 2X/DAY [INITIAL DOSE 1- 5 MG TAB TWICE DAILY]
     Route: 048
  3. XELJANZ [Suspect]
     Active Substance: TOFACITINIB CITRATE
     Dosage: 12.5 MG, DAILY (TOOK 1 AND A 1/2 TABLETS AM AND 1 TABLET PM OF 5 MG DOSE)
     Route: 048
     Dates: start: 201902, end: 201906

REACTIONS (2)
  - Off label use [Unknown]
  - Hepatic enzyme increased [Recovering/Resolving]

NARRATIVE: CASE EVENT DATE: 2019
